FAERS Safety Report 6767681-9 (Version None)
Quarter: 2010Q2

REPORT INFORMATION
  Report Type: 
  Country: None (occurrence: None)
  Receive Date: 20100610
  Receipt Date: 20100602
  Transmission Date: 20101027
  Serious: Yes (Other)
  Sender: FDA-Public Use
  Company Number: 100743

PATIENT
  Age: 67 Year
  Sex: Female

DRUGS (1)
  1. ACETYLCYSTEINE [Suspect]
     Indication: IMAGING PROCEDURE
     Dosage: 600 MG ORALLY WITH JUICE TWICE DAILY
     Route: 048
     Dates: start: 20100601

REACTIONS (2)
  - HYPOAESTHESIA [None]
  - INCORRECT DOSE ADMINISTERED [None]
